FAERS Safety Report 17790016 (Version 1)
Quarter: 2020Q2

REPORT INFORMATION
  Report Type: Spontaneous
  Country: CN (occurrence: CN)
  Receive Date: 20200515
  Receipt Date: 20200515
  Transmission Date: 20200714
  Serious: Yes (Other)
  Sender: FDA-Public Use
  Company Number: CN-SUN PHARMACEUTICAL INDUSTRIES LTD-2020R1-246466

PATIENT
  Age: 40 Year
  Sex: Female

DRUGS (2)
  1. GEMCITABINE. [Suspect]
     Active Substance: GEMCITABINE
     Indication: ADENOCARCINOMA OF THE CERVIX
     Dosage: UNK (4 CYCLES)
     Route: 065
     Dates: start: 20180414, end: 20180704
  2. CISPLATIN. [Suspect]
     Active Substance: CISPLATIN
     Indication: ADENOCARCINOMA OF THE CERVIX
     Dosage: UNK (4 CYCLES)
     Route: 065
     Dates: start: 20180414, end: 20180704

REACTIONS (2)
  - Bone marrow failure [Unknown]
  - Disease progression [Unknown]

NARRATIVE: CASE EVENT DATE: 2018
